FAERS Safety Report 7328458-9 (Version None)
Quarter: 2011Q1

REPORT INFORMATION
  Report Type: 
  Country: None (occurrence: None)
  Receive Date: 20110224
  Receipt Date: 20110224
  Transmission Date: 20110831
  Serious: Yes (Other)
  Sender: FDA-Public Use
  Company Number: None

PATIENT

DRUGS (1)
  1. LEVOXYL [Suspect]
     Dates: start: 20101203, end: 20101210

REACTIONS (14)
  - MYALGIA [None]
  - CONFUSIONAL STATE [None]
  - THYROID FUNCTION TEST ABNORMAL [None]
  - LOSS OF CONSCIOUSNESS [None]
  - PARAESTHESIA [None]
  - VOMITING [None]
  - PRODUCT SUBSTITUTION ISSUE [None]
  - BLOOD PRESSURE ABNORMAL [None]
  - WRONG TECHNIQUE IN DRUG USAGE PROCESS [None]
  - FEAR [None]
  - EYE PAIN [None]
  - FATIGUE [None]
  - CRYING [None]
  - PHOTOPHOBIA [None]
